FAERS Safety Report 16992615 (Version 3)
Quarter: 2022Q1

REPORT INFORMATION
  Report Type: Spontaneous
  Country: US (occurrence: None)
  Receive Date: 20191105
  Receipt Date: 20220121
  Transmission Date: 20220423
  Serious: Yes (Other)
  Sender: FDA-Public Use
  Company Number: US-ROCHE-2454257

PATIENT
  Age: 36 Year
  Sex: Female
  Weight: 60.382 kg

DRUGS (6)
  1. OCREVUS [Suspect]
     Active Substance: OCRELIZUMAB
     Indication: Relapsing-remitting multiple sclerosis
     Route: 042
     Dates: start: 20180717
  2. SULFACETAMIDE [Concomitant]
     Active Substance: SULFACETAMIDE
     Dosage: ONGOING: YES
     Route: 061
  3. TRILEPTAL [Concomitant]
     Active Substance: OXCARBAZEPINE
     Indication: Neuralgia
     Dosage: ONGOING: YES
  4. TRILEPTAL [Concomitant]
     Active Substance: OXCARBAZEPINE
     Indication: Seizure
  5. GABAPENTIN [Concomitant]
     Active Substance: GABAPENTIN
     Indication: Neuralgia
     Dosage: ONGOING: YES
  6. OXYCODONE [Concomitant]
     Active Substance: OXYCODONE

REACTIONS (6)
  - Pneumonia [Not Recovered/Not Resolved]
  - Depression [Unknown]
  - Disease recurrence [Unknown]
  - Malaise [Unknown]
  - Headache [Unknown]
  - Nausea [Unknown]

NARRATIVE: CASE EVENT DATE: 20191001
